FAERS Safety Report 7692453-0 (Version None)
Quarter: 2011Q3

REPORT INFORMATION
  Report Type: 
  Country: None (occurrence: None)
  Receive Date: 20110818
  Receipt Date: 20110810
  Transmission Date: 20111222
  Serious: Yes (Life-Threatening, Other)
  Sender: FDA-Public Use
  Company Number: US-RB-026777-11

PATIENT
  Age: 66 Year
  Sex: Male

DRUGS (3)
  1. FENTANYL [Concomitant]
     Route: 062
  2. SUBOXONE [Suspect]
     Indication: PRODUCT USED FOR UNKNOWN INDICATION
     Dosage: 1 DOSE
     Route: 060
     Dates: start: 20110119, end: 20110119
  3. FENTANYL [Concomitant]
     Indication: PAIN
     Route: 048
     Dates: start: 20110119, end: 20110119

REACTIONS (7)
  - HOMICIDAL IDEATION [None]
  - SUICIDAL IDEATION [None]
  - DRUG WITHDRAWAL SYNDROME [None]
  - DRUG ABUSE [None]
  - HALLUCINATION [None]
  - INTENTIONAL DRUG MISUSE [None]
  - TREMOR [None]
